FAERS Safety Report 7654206-9 (Version None)
Quarter: 2011Q3

REPORT INFORMATION
  Report Type: 
  Country: None (occurrence: None)
  Receive Date: 20110803
  Receipt Date: 20110729
  Transmission Date: 20111222
  Serious: Yes (Hospitalization, Other)
  Sender: FDA-Public Use
  Company Number: FR-ABBOTT-11P-056-0842383-00

PATIENT
  Sex: Male

DRUGS (2)
  1. AMOXICILLIN [Suspect]
     Indication: HELICOBACTER INFECTION
     Route: 048
     Dates: start: 20110220, end: 20110225
  2. CLARITHROMYCIN [Suspect]
     Indication: HELICOBACTER INFECTION
     Route: 048
     Dates: start: 20110220, end: 20110225

REACTIONS (4)
  - PSEUDOMEMBRANOUS COLITIS [None]
  - ABDOMINAL PAIN LOWER [None]
  - CLOSTRIDIAL INFECTION [None]
  - ANORECTAL DISORDER [None]
